FAERS Safety Report 8105099-7 (Version None)
Quarter: 2012Q1

REPORT INFORMATION
  Report Type: 
  Country: None (occurrence: None)
  Receive Date: 20120201
  Receipt Date: 20120123
  Transmission Date: 20120608
  Serious: Yes (Hospitalization, Disabling)
  Sender: FDA-Public Use
  Company Number: CA-PFIZER INC-2009290391

PATIENT
  Age: 69 Year
  Sex: Male
  Weight: 87.3 kg

DRUGS (20)
  1. RIVASA [Concomitant]
     Indication: ANGINA PECTORIS
     Dosage: UNK
     Dates: start: 20060301
  2. CALCIUM WITH VITAMIN D [Concomitant]
     Indication: SUPPLEMENTATION THERAPY
     Dosage: UNK
     Dates: start: 20061001
  3. AMLODIPINE BESILATE [Concomitant]
     Indication: HYPERTENSION
     Dosage: UNK
     Dates: start: 20070801
  4. ZOMETA [Concomitant]
     Indication: BONE DISORDER
     Dosage: UNK
     Dates: start: 20080601
  5. LIPITOR [Concomitant]
     Indication: DYSLIPIDAEMIA
     Dosage: UNK
     Dates: start: 20060301
  6. ANUSOL [Concomitant]
     Indication: PROCTALGIA
     Dosage: UNK
     Dates: start: 20090601
  7. SUNITINIB MALATE [Suspect]
     Indication: PROSTATE CANCER
     Dosage: 37.5 MG, 1X/DAY
     Route: 048
     Dates: start: 20091020, end: 20091027
  8. PREDNISONE TAB [Suspect]
     Indication: PROSTATE CANCER
     Dosage: 5 MG, 2X/DAY
     Route: 048
     Dates: start: 20091020, end: 20091028
  9. PLAVIX [Concomitant]
     Indication: ARTERIAL STENT INSERTION
  10. METOPROLOL [Concomitant]
     Indication: HYPERTENSION
     Dosage: UNK
     Dates: start: 20070601
  11. PREDNISONE [Concomitant]
     Dosage: 5 MG, 2X/DAY
     Route: 048
     Dates: start: 20091001
  12. VALSARTAN [Concomitant]
     Indication: HYPERTENSION
     Dosage: UNK
     Dates: start: 20080901
  13. METFORMIN HYDROCHLORIDE [Concomitant]
     Indication: DIABETES MELLITUS
     Dosage: UNK
     Dates: start: 20090301
  14. DOCUSATE SODIUM [Concomitant]
     Indication: CONSTIPATION
     Dosage: AS NEEDED
     Dates: start: 20090601
  15. PLAVIX [Concomitant]
     Indication: ANGINA PECTORIS
     Dosage: UNK
     Dates: start: 20060301
  16. LEUPRORELIN ACETATE [Concomitant]
     Indication: PROSTATIC DISORDER
     Dosage: UNK
     Dates: start: 20070101
  17. PANTOPRAZOLE [Concomitant]
     Indication: GASTROOESOPHAGEAL REFLUX PROPHYLAXIS
     Dosage: UNK
     Dates: start: 20060501
  18. SIMVASTATIN [Concomitant]
     Indication: PAIN
     Dosage: UNK
     Dates: start: 20090901
  19. PREDNISONE [Concomitant]
     Indication: ARTHRITIS
     Dosage: 5 MG, 2X/DAY
     Route: 048
     Dates: start: 20020201, end: 20091020
  20. RIVASA [Concomitant]
     Indication: ARTERIAL STENT INSERTION

REACTIONS (1)
  - CEREBRAL ISCHAEMIA [None]
